FAERS Safety Report 7193701-6 (Version None)
Quarter: 2010Q4

REPORT INFORMATION
  Report Type: 
  Country: None (occurrence: None)
  Receive Date: 20101124
  Receipt Date: 20100923
  Transmission Date: 20110411
  Serious: No
  Sender: FDA-Public Use
  Company Number: 017391

PATIENT
  Sex: Female
  Weight: 54.4 kg

DRUGS (2)
  1. LACOSAMIDE [Suspect]
     Indication: CONVULSION
     Dosage: (150 MG BID ORAL) ; (100 MG BID ORAL)
     Route: 048
     Dates: start: 20100624, end: 20100816
  2. LACOSAMIDE [Suspect]
     Indication: CONVULSION
     Dosage: (150 MG BID ORAL) ; (100 MG BID ORAL)
     Route: 048
     Dates: start: 20100816, end: 20100916

REACTIONS (7)
  - DIZZINESS [None]
  - EXTRASYSTOLES [None]
  - FALL [None]
  - GAIT DISTURBANCE [None]
  - MENTAL IMPAIRMENT [None]
  - SPEECH DISORDER [None]
  - VISION BLURRED [None]
